FAERS Safety Report 8246480-5 (Version None)
Quarter: 2012Q1

REPORT INFORMATION
  Report Type: 
  Country: None (occurrence: None)
  Receive Date: 20120329
  Receipt Date: 20120329
  Transmission Date: 20120608
  Serious: Yes (Other)
  Sender: FDA-Public Use
  Company Number: None

PATIENT
  Sex: Female

DRUGS (3)
  1. RIBAVIRIN [Suspect]
     Indication: HEPATITIS C
     Dosage: 400 MG BID PO
     Route: 048
     Dates: start: 20111205, end: 20120228
  2. VICTRELIS [Suspect]
  3. PEG-INTRON [Suspect]

REACTIONS (2)
  - BLOOD COUNT ABNORMAL [None]
  - HAEMORRHAGE [None]
